FAERS Safety Report 13237045 (Version 1)
Quarter: 2017Q1

REPORT INFORMATION
  Report Type: Spontaneous
  Country: US (occurrence: US)
  Receive Date: 20170215
  Receipt Date: 20170215
  Transmission Date: 20170428
  Serious: Yes (Hospitalization)
  Sender: FDA-Public Use
  Company Number: US-BRISTOL-MYERS SQUIBB COMPANY-BMS-2017-011019

PATIENT
  Sex: Male

DRUGS (1)
  1. OPDIVO [Suspect]
     Active Substance: NIVOLUMAB
     Indication: NON-SMALL CELL LUNG CANCER
     Dosage: UNK
     Route: 042
     Dates: start: 20170206

REACTIONS (6)
  - Blood thyroid stimulating hormone abnormal [Unknown]
  - Ventricular dysfunction [Unknown]
  - Dyspnoea [Unknown]
  - Laboratory test abnormal [Unknown]
  - Brain natriuretic peptide abnormal [Unknown]
  - Hepatic enzyme increased [Unknown]
